FAERS Safety Report 17804920 (Version 2)
Quarter: 2020Q2

REPORT INFORMATION
  Report Type: Spontaneous
  Country: US (occurrence: US)
  Receive Date: 20200519
  Receipt Date: 20200609
  Transmission Date: 20200714
  Serious: Yes (Congenital Anomaly)
  Sender: FDA-Public Use
  Company Number: US-VERTEX PHARMACEUTICALS-2020-010885

PATIENT
  Sex: Female

DRUGS (28)
  1. KITABIS PAK [Concomitant]
     Active Substance: TOBRAMYCIN
  2. ACETAMINOPHEN. [Concomitant]
     Active Substance: ACETAMINOPHEN
  3. PROMETHAZINE HCL [Concomitant]
     Active Substance: PROMETHAZINE HYDROCHLORIDE
  4. ZOLPIDEM TARTRATE. [Concomitant]
     Active Substance: ZOLPIDEM TARTRATE
  5. ALBUTEROL [SALBUTAMOL] [Concomitant]
     Active Substance: ALBUTEROL
  6. CEFTAZIDIME. [Concomitant]
     Active Substance: CEFTAZIDIME
  7. AZITHROMYCIN ANHYDROUS. [Concomitant]
     Active Substance: AZITHROMYCIN ANHYDROUS
  8. ALBUTEROL SULFATE. [Concomitant]
     Active Substance: ALBUTEROL SULFATE
  9. PULMOZYME [Concomitant]
     Active Substance: DORNASE ALFA
  10. LEVALBUTEROL HCL [Concomitant]
     Active Substance: LEVALBUTEROL HYDROCHLORIDE
  11. FAMOTIDINE. [Concomitant]
     Active Substance: FAMOTIDINE
  12. HYPERTONIC SALINE SOLUTION [Concomitant]
     Active Substance: SODIUM CHLORIDE
  13. GLUCOSE [Concomitant]
     Active Substance: DEXTROSE
  14. ZENPEP [Concomitant]
     Active Substance: PANCRELIPASE AMYLASE\PANCRELIPASE LIPASE\PANCRELIPASE PROTEASE
  15. ONDANSETRON [Concomitant]
     Active Substance: ONDANSETRON
  16. SYMDEKO [Suspect]
     Active Substance: IVACAFTOR\TEZACAFTOR
     Indication: CYSTIC FIBROSIS
     Dosage: TEZACAFTOR 100 MG/ IVACAFTOR 150 MG QAM; IVACAFTOR 150 MG QPM
     Route: 048
     Dates: start: 20190130, end: 20191108
  17. MAGNESIUM CITRATE. [Concomitant]
     Active Substance: MAGNESIUM CITRATE
  18. LEVOFLOXACIN. [Concomitant]
     Active Substance: LEVOFLOXACIN
  19. VANCOMYCIN HCL [Concomitant]
     Active Substance: VANCOMYCIN HYDROCHLORIDE
  20. DIPHENHYDRAMINE HCL [Concomitant]
     Active Substance: DIPHENHYDRAMINE HYDROCHLORIDE
  21. LIDOCAINE. [Concomitant]
     Active Substance: LIDOCAINE
  22. LEVOTHYROXINE SODIUM. [Concomitant]
     Active Substance: LEVOTHYROXINE SODIUM
  23. XOPENEX [Concomitant]
     Active Substance: LEVALBUTEROL HYDROCHLORIDE
  24. CAYSTON [Concomitant]
     Active Substance: AZTREONAM
  25. SYNTHROID [Concomitant]
     Active Substance: LEVOTHYROXINE SODIUM
  26. HEPARIN SODIUM PORCINE [Concomitant]
     Active Substance: HEPARIN SODIUM
  27. CREON [Concomitant]
     Active Substance: PANCRELIPASE AMYLASE\PANCRELIPASE LIPASE\PANCRELIPASE PROTEASE
  28. VITAMIN D3 [Concomitant]
     Active Substance: CHOLECALCIFEROL

REACTIONS (1)
  - Leber^s congenital amaurosis [Not Recovered/Not Resolved]
